FAERS Safety Report 23272535 (Version 1)
Quarter: 2023Q4

REPORT INFORMATION
  Report Type: Report from Study
  Country: US (occurrence: US)
  Receive Date: 20231207
  Receipt Date: 20231207
  Transmission Date: 20240110
  Serious: No
  Sender: FDA-Public Use
  Company Number: US-ALXN-A202309061

PATIENT
  Sex: Male

DRUGS (1)
  1. ULTOMIRIS [Suspect]
     Active Substance: RAVULIZUMAB-CWVZ
     Indication: Myasthenia gravis
     Dosage: UNK
     Route: 065
     Dates: start: 20230707

REACTIONS (9)
  - Feeling abnormal [Unknown]
  - Peripheral swelling [Recovering/Resolving]
  - Localised infection [Unknown]
  - Therapeutic response shortened [Unknown]
  - Erythema [Unknown]
  - Feeling hot [Unknown]
  - Asthenia [Unknown]
  - Arthralgia [Recovering/Resolving]
  - Back pain [Recovering/Resolving]

NARRATIVE: CASE EVENT DATE: 20230707
